FAERS Safety Report 16645659 (Version 2)
Quarter: 2019Q3

REPORT INFORMATION
  Report Type: Spontaneous
  Country: US (occurrence: US)
  Receive Date: 20190730
  Receipt Date: 20190805
  Transmission Date: 20191004
  Serious: Yes (Hospitalization, Other)
  Sender: FDA-Public Use
  Company Number: US-AMGEN-USASP2019119519

PATIENT
  Age: 66 Year
  Sex: Female
  Weight: 74.92 kg

DRUGS (3)
  1. NEULASTA [Suspect]
     Active Substance: PEGFILGRASTIM
     Indication: PRODUCT USED FOR UNKNOWN INDICATION
     Dosage: 6 MILLIGRAM
     Route: 065
     Dates: start: 20190710, end: 20190711
  2. TAXOTERE [Suspect]
     Active Substance: DOCETAXEL
     Indication: BREAST CANCER
     Dosage: 138 MILLIGRAM, Q3WK
     Route: 065
     Dates: start: 20190710, end: 20190716
  3. CYTOXAN [Suspect]
     Active Substance: CYCLOPHOSPHAMIDE
     Indication: BREAST CANCER
     Dosage: 1104 MILLIGRAM, Q3WK
     Route: 065
     Dates: start: 20190710, end: 20190716

REACTIONS (7)
  - Fatigue [Recovered/Resolved]
  - Asthenia [Recovered/Resolved]
  - Refusal of treatment by patient [Unknown]
  - Syncope [Unknown]
  - Malaise [Unknown]
  - Dehydration [Unknown]
  - Device malfunction [Unknown]

NARRATIVE: CASE EVENT DATE: 201907
